FAERS Safety Report 9585827 (Version 1)
Quarter: 2013Q4

REPORT INFORMATION
  Report Type: Spontaneous
  Country: US (occurrence: US)
  Receive Date: 20131003
  Receipt Date: 20131003
  Transmission Date: 20140711
  Serious: Yes (Other)
  Sender: FDA-Public Use
  Company Number: US-009507513-1309USA014107

PATIENT
  Age: 20 Year
  Sex: Female
  Weight: 137.41 kg

DRUGS (6)
  1. NEXPLANON [Suspect]
     Indication: CONTRACEPTION
     Dosage: 68MG/3 YEAR IMPLANT
     Route: 059
     Dates: start: 20130410, end: 20130920
  2. ZOLOFT [Concomitant]
     Dosage: UNKNOWN
  3. ADDERALL TABLETS [Concomitant]
     Dosage: UNKNOWN
  4. PROVENTIL [Concomitant]
     Dosage: UNKNOWN
  5. STRATTERA [Concomitant]
     Dosage: UNKNOWN
  6. CELEXA [Concomitant]
     Dosage: UNKNOWN

REACTIONS (9)
  - Surgery [Unknown]
  - Device difficult to use [Unknown]
  - Carpal tunnel syndrome [Unknown]
  - Device dislocation [Unknown]
  - Weight loss poor [Unknown]
  - Menstruation irregular [Unknown]
  - Menorrhagia [Unknown]
  - Nausea [Unknown]
  - Device breakage [Unknown]
